FAERS Safety Report 19632651 (Version 1)
Quarter: 2021Q3

REPORT INFORMATION
  Report Type: Spontaneous
  Country: GB (occurrence: GB)
  Receive Date: 20210728
  Receipt Date: 20210728
  Transmission Date: 20211014
  Serious: Yes (Hospitalization)
  Sender: FDA-Public Use
  Company Number: GB-BAXTER-2021BAX020401

PATIENT
  Age: 74 Year
  Sex: Female
  Weight: 53 kg

DRUGS (10)
  1. PLATELETS [Concomitant]
     Active Substance: HUMAN PLATELET, ALLOGENIC
     Indication: THROMBOSIS PROPHYLAXIS
     Dosage: 1 PLATELET TRANSFUSION
     Route: 065
  2. CYCLOPHOSPHAMIDE TABLETS 50 MG [Suspect]
     Active Substance: CYCLOPHOSPHAMIDE
     Indication: PLASMA CELL MYELOMA
     Dosage: 500 MILLIGRAM, WEEKLY ON DAYS 1, 8 AND 15 DAY OF EVERY 28 DAYS CYCLE
     Route: 048
     Dates: start: 20170929
  3. VELCADE [Suspect]
     Active Substance: BORTEZOMIB
     Indication: PLASMA CELL MYELOMA
     Dosage: WEEKLY ON DAYS 1, 8 AND 15 DAY OF EVERY 28 DAYS CYCLE
     Route: 058
     Dates: start: 20170929
  4. VELCADE [Suspect]
     Active Substance: BORTEZOMIB
     Dosage: LAST ADMINISTERED DOSE PRIOR TO AE, CYCLE 3, DAY 15
     Route: 058
     Dates: start: 20171227, end: 20171227
  5. DECADRON [Suspect]
     Active Substance: DEXAMETHASONE
     Indication: PLASMA CELL MYELOMA
     Dosage: 20 MILLIGRAM, WEEKLY ON DAYS 1, 8 AND 15 DAY OF EVERY 28 DAYS CYCLE
     Route: 048
     Dates: start: 20170929
  6. ASPIRIN. [Concomitant]
     Active Substance: ASPIRIN
     Indication: THROMBOSIS PROPHYLAXIS
     Dosage: UNK
     Route: 065
  7. CYCLOPHOSPHAMIDE TABLETS 50 MG [Suspect]
     Active Substance: CYCLOPHOSPHAMIDE
     Dosage: LAST ADMINISTERED DOSE PRIOR TO AE
     Route: 048
     Dates: start: 20171229, end: 20171229
  8. DECADRON [Suspect]
     Active Substance: DEXAMETHASONE
     Dosage: LAST ADMINISTERED DOSE PRIOR TO AE, CYCLE 3, DAY 15
     Route: 048
     Dates: start: 20171227, end: 20171227
  9. REVLIMID [Suspect]
     Active Substance: LENALIDOMIDE
     Indication: PLASMA CELL MYELOMA
     Dosage: 25 MILLIGRAM, ON 21 DAYS AND 7 DAYS OFF
     Route: 048
     Dates: start: 20180113
  10. REVLIMID [Suspect]
     Active Substance: LENALIDOMIDE
     Dosage: LAST ADMINISTERED DOSE PRIOR TO AE, (CYCLE 1, DAY 17)
     Route: 048
     Dates: start: 20180129, end: 20180129

REACTIONS (6)
  - Epistaxis [Not Recovered/Not Resolved]
  - Haemoptysis [Not Recovered/Not Resolved]
  - Weight decreased [Not Recovered/Not Resolved]
  - Peripheral swelling [Not Recovered/Not Resolved]
  - Asthenia [Not Recovered/Not Resolved]
  - Fatigue [Not Recovered/Not Resolved]

NARRATIVE: CASE EVENT DATE: 20180110
